FAERS Safety Report 5843852-0 (Version None)
Quarter: 2008Q3

REPORT INFORMATION
  Report Type: 
  Country: None (occurrence: None)
  Receive Date: 20080813
  Receipt Date: 20080804
  Transmission Date: 20090109
  Serious: Yes (Hospitalization, Other)
  Sender: FDA-Public Use
  Company Number: PHBS2008GB05291

PATIENT
  Age: 7 Year
  Sex: Female

DRUGS (7)
  1. CYCLOSPORINE [Suspect]
     Indication: EVANS SYNDROME
  2. MYCOPHENOLATE MOFETIL [Concomitant]
     Indication: EVANS SYNDROME
  3. IMMUNE GLOBULIN (HUMAN) [Concomitant]
     Indication: EVANS SYNDROME
     Route: 042
  4. PREDNISOLONE [Concomitant]
     Indication: EVANS SYNDROME
  5. PREDNISOLONE [Concomitant]
     Indication: LYMPHOPROLIFERATIVE DISORDER
  6. RITUXIMAB [Concomitant]
     Indication: EVANS SYNDROME
  7. RITUXIMAB [Concomitant]
     Indication: LYMPHOPROLIFERATIVE DISORDER

REACTIONS (10)
  - ANOREXIA [None]
  - BLOOD PRESSURE SYSTOLIC DECREASED [None]
  - BONE MARROW TRANSPLANT [None]
  - COUGH [None]
  - DILATATION VENTRICULAR [None]
  - LUNG DISORDER [None]
  - LYMPHOCYTIC INFILTRATION [None]
  - LYMPHOPROLIFERATIVE DISORDER [None]
  - PULMONARY HYPERTENSION [None]
  - RESPIRATORY DISORDER [None]
